FAERS Safety Report 23730267 (Version 1)
Quarter: 2024Q2

REPORT INFORMATION
  Report Type: Spontaneous
  Country: US (occurrence: US)
  Receive Date: 20240411
  Receipt Date: 20240411
  Transmission Date: 20240716
  Serious: Yes (Other)
  Sender: FDA-Public Use
  Company Number: US-UNITED THERAPEUTICS-UNT-2024-009974

PATIENT
  Age: 59 Year
  Sex: Male

DRUGS (7)
  1. REMODULIN [Suspect]
     Active Substance: TREPROSTINIL
     Indication: Pulmonary arterial hypertension
     Dosage: 0.038 ?G/KG, CONTINUING
     Route: 058
     Dates: start: 20230501
  2. REMODULIN [Suspect]
     Active Substance: TREPROSTINIL
     Dosage: UNK, CONTINUING
     Route: 058
  3. FUROSEMIDE [Suspect]
     Active Substance: FUROSEMIDE
     Indication: Fluid retention
     Dosage: 80 MG, BID
     Route: 065
  4. METOLAZONE [Suspect]
     Active Substance: METOLAZONE
     Indication: Fluid retention
     Dosage: 2.5 MG, QWK
     Route: 065
     Dates: end: 2023
  5. METOLAZONE [Suspect]
     Active Substance: METOLAZONE
     Indication: Oedema
     Dosage: 2.5 MG, 2 TIMES/WK
     Route: 065
     Dates: start: 20230501, end: 2023
  6. RIOCIGUAT [Concomitant]
     Active Substance: RIOCIGUAT
     Indication: Pulmonary arterial hypertension
     Dosage: UNK
     Route: 065
  7. AMBRISENTAN [Concomitant]
     Active Substance: AMBRISENTAN
     Indication: Pulmonary arterial hypertension
     Dosage: UNK
     Route: 065

REACTIONS (4)
  - Right ventricular failure [Recovering/Resolving]
  - Oedema [Recovering/Resolving]
  - Fluid retention [Recovering/Resolving]
  - Therapeutic response decreased [Unknown]
